FAERS Safety Report 13292102 (Version 1)
Quarter: 2017Q1

REPORT INFORMATION
  Report Type: Report from Study
  Country: None (occurrence: US)
  Receive Date: 20170303
  Receipt Date: 20170303
  Transmission Date: 20170428
  Serious: Yes (Other)
  Sender: FDA-Public Use
  Company Number: US-ABBVIE-17K-163-1893150-00

PATIENT
  Age: 26 Year
  Sex: Female

DRUGS (2)
  1. HUMIRA [Suspect]
     Active Substance: ADALIMUMAB
     Route: 058
     Dates: start: 20170222, end: 20170222
  2. HUMIRA [Suspect]
     Active Substance: ADALIMUMAB
     Indication: CROHN^S DISEASE
     Route: 058
     Dates: start: 2013, end: 2015

REACTIONS (10)
  - Anxiety [Unknown]
  - Abdominal pain [Unknown]
  - Intestinal resection [Unknown]
  - Constipation [Unknown]
  - Injection site pain [Unknown]
  - Weight decreased [Unknown]
  - Fear [Unknown]
  - Depressed mood [Unknown]
  - Insomnia [Unknown]
  - Incision site pain [Unknown]

NARRATIVE: CASE EVENT DATE: 20170112
